FAERS Safety Report 8916020 (Version 2)
Quarter: 2012Q4

REPORT INFORMATION
  Report Type: 
  Country: US (occurrence: US)
  Receive Date: 20121119
  Receipt Date: 20121211
  Transmission Date: 20130627
  Serious: Yes (Hospitalization, Other)
  Sender: FDA-Public Use
  Company Number: US-TEVA-370387USA

PATIENT
  Sex: Female
  Weight: 74.91 kg

DRUGS (7)
  1. WARFARIN [Suspect]
     Dosage: 7.5 mg or 5 mg daily depending upon blood work
     Dates: start: 201209
  2. CELECOXIB [Interacting]
     Indication: ARTHRITIS
     Dosage: 200 Milligram Daily; started 8 years ago
     Dates: end: 2012
  3. CITALOPRAM [Concomitant]
     Indication: DEPRESSION
     Dosage: 20 Milligram Daily;
     Dates: start: 201210
  4. CLORAZEPATE DIPOTASSIUM [Concomitant]
     Indication: ANXIETY
     Dosage: 15 Milligram Daily;
  5. LISINOPRIL [Concomitant]
     Indication: HYPERTENSION
     Dosage: 40 Milligram Daily;
  6. GABAPENTIN [Concomitant]
     Indication: NERVE INJURY
     Dosage: 900 Milligram Daily;
  7. PAROXETINE HYDROCHLORIDE [Concomitant]
     Indication: DEPRESSION
     Dates: end: 201210

REACTIONS (10)
  - Drug interaction [Unknown]
  - Thrombosis [Unknown]
  - Oedema peripheral [Unknown]
  - Mobility decreased [Unknown]
  - Laboratory test abnormal [Recovered/Resolved]
  - Blood disorder [Unknown]
  - Heart rate increased [Recovered/Resolved]
  - Apparent death [Unknown]
  - Speech disorder [Recovered/Resolved]
  - Back disorder [Unknown]
